FAERS Safety Report 8920689 (Version 1)
Quarter: 2012Q4

REPORT INFORMATION
  Report Type: 
  Country: GB (occurrence: GB)
  Receive Date: 20121122
  Receipt Date: 20121122
  Transmission Date: 20130627
  Serious: Yes (Hospitalization)
  Sender: FDA-Public Use
  Company Number: GB-009507513-1211GBR007381

PATIENT

DRUGS (1)
  1. SINEMET PLUS RETARD 25/100 MG COMPRIMIDOS DE LIBERACI?N RETARDADA [Suspect]
     Dosage: 25/100, 5XD
     Route: 048

REACTIONS (2)
  - Feeling abnormal [Unknown]
  - Inappropriate schedule of drug administration [Unknown]
